FAERS Safety Report 19867934 (Version 1)
Quarter: 2021Q3

REPORT INFORMATION
  Report Type: Spontaneous
  Country: FR (occurrence: FR)
  Receive Date: 20210922
  Receipt Date: 20210922
  Transmission Date: 20211014
  Serious: Yes (Hospitalization)
  Sender: FDA-Public Use
  Company Number: NVSC2021FR212019

PATIENT
  Age: 54 Year
  Sex: Female

DRUGS (4)
  1. TAZOBACTAM [Suspect]
     Active Substance: TAZOBACTAM
     Indication: ARTHRECTOMY
     Dosage: UNK
     Route: 042
     Dates: start: 20210603, end: 20210608
  2. OFLOXACIN. [Suspect]
     Active Substance: OFLOXACIN
     Indication: ARTHRECTOMY
     Dosage: UNK
     Route: 042
     Dates: start: 20210608, end: 20210611
  3. CLINDAMYCIN. [Suspect]
     Active Substance: CLINDAMYCIN
     Indication: ARTHRECTOMY
     Dosage: UNK
     Route: 042
     Dates: start: 20210608, end: 20210614
  4. PIPERACILLINE [Suspect]
     Active Substance: PIPERACILLIN SODIUM
     Indication: ARTHRECTOMY
     Dosage: UNK
     Route: 042
     Dates: start: 20210603, end: 20210608

REACTIONS (3)
  - Pyrexia [Recovered/Resolved]
  - Rash [Recovered/Resolved]
  - Toxic skin eruption [Recovered/Resolved]

NARRATIVE: CASE EVENT DATE: 20210609
